FAERS Safety Report 9172415 (Version 1)
Quarter: 2012Q4

REPORT INFORMATION
  Report Type: 
  Country: US (occurrence: US)
  Receive Date: 20120911
  Receipt Date: 20120911
  Transmission Date: 20130627
  Serious: Yes (Other)
  Sender: FDA-Public Use
  Company Number: PHHY2012US077507

PATIENT
  Age: 77 Year
  Sex: Female

DRUGS (1)
  1. HYDROCHLOROTHIAZIDE [Suspect]
     Indication: HYPERTENSION

REACTIONS (8)
  - Mycosis fungoides stage III [Recovered/Resolved]
  - Dermatitis exfoliative [Recovered/Resolved]
  - Rash [Recovered/Resolved]
  - Skin plaque [Recovered/Resolved]
  - Pruritus [Recovered/Resolved]
  - Lymphocyte morphology abnormal [Recovered/Resolved]
  - Lymphocytic infiltration [Recovered/Resolved]
  - Subcutaneous abscess [Recovered/Resolved]
